FAERS Safety Report 4523458-6 (Version None)
Quarter: 2004Q4

REPORT INFORMATION
  Report Type: 
  Country: None (occurrence: None)
  Receive Date: 20041117
  Receipt Date: 20040726
  Transmission Date: 20050328
  Serious: Yes (Hospitalization, Other)
  Sender: FDA-Public Use
  Company Number: DE-JNJFOC-20040707108

PATIENT
  Age: 83 Year
  Sex: Female

DRUGS (30)
  1. LEVOFLOXACIN [Suspect]
     Indication: PNEUMONIA
     Dosage: INTRAVENOUS
     Route: 042
     Dates: start: 20040106, end: 20040107
  2. LEVOFLOXACIN [Suspect]
     Indication: PNEUMONIA
     Dosage: ORAL
     Route: 048
     Dates: start: 20040108, end: 20040119
  3. LEVAQUIN [Concomitant]
  4. PRILOSEC [Concomitant]
  5. PANCREASE (PANCREALIPASE) [Concomitant]
  6. ATENOLOL [Concomitant]
  7. XANAX [Concomitant]
  8. AMBIEN [Concomitant]
  9. ELAVIL [Concomitant]
  10. DITROPAN [Concomitant]
  11. DITTROPAN (OXYBUTYNIN) [Concomitant]
  12. VICODIN [Concomitant]
  13. LOVENOX [Concomitant]
  14. MAGNESIUM SULFATE [Concomitant]
  15. NITROGLYCERIN [Concomitant]
  16. ATARAX [Concomitant]
  17. MAGNESIUM OXIDE (MAGNESIUM OXIDE) [Concomitant]
  18. HYDROCHLOROTHIAZIDE [Concomitant]
  19. IMODIUM [Concomitant]
  20. NORVASC [Concomitant]
  21. PROTONIX [Concomitant]
  22. XANAX [Concomitant]
  23. LASIX [Concomitant]
  24. POTASSIUM CHLORIDE [Concomitant]
  25. ULTRAM [Concomitant]
  26. DEMEROL [Concomitant]
  27. EPHEDRINE INEOSTIGMINE) [Concomitant]
  28. NEOSTIGMINE (NEOSTIGMINE) [Concomitant]
  29. VERSED [Concomitant]
  30. FENTANYL [Concomitant]

REACTIONS (3)
  - ARTHRITIS INFECTIVE [None]
  - CLOSTRIDIUM COLITIS [None]
  - DYSPNOEA [None]
